FAERS Safety Report 6508497-8 (Version None)
Quarter: 2009Q4

REPORT INFORMATION
  Report Type: 
  Country: None (occurrence: None)
  Receive Date: 20091221
  Receipt Date: 20081117
  Transmission Date: 20100525
  Serious: No
  Sender: FDA-Public Use
  Company Number: US-ASTRAZENECA-2008UW25767

PATIENT
  Age: 65 Year
  Sex: Male
  Weight: 72.6 kg

DRUGS (4)
  1. CRESTOR [Suspect]
     Route: 048
     Dates: start: 20081101, end: 20081118
  2. CORTISONE [Concomitant]
     Indication: BACK PAIN
  3. VITAMINS [Concomitant]
  4. PLAVIX [Concomitant]

REACTIONS (4)
  - BACK PAIN [None]
  - MEMORY IMPAIRMENT [None]
  - MENTAL IMPAIRMENT [None]
  - PAIN IN EXTREMITY [None]
